FAERS Safety Report 18663545 (Version 2)
Quarter: 2021Q1

REPORT INFORMATION
  Report Type: Spontaneous
  Country: IL (occurrence: IL)
  Receive Date: 20201224
  Receipt Date: 20210106
  Transmission Date: 20210419
  Serious: Yes (Other)
  Sender: FDA-Public Use
  Company Number: IL-GILEAD-2020-0510488

PATIENT
  Age: 66 Year
  Sex: Male
  Weight: 73 kg

DRUGS (3)
  1. ELTROXIN [Suspect]
     Active Substance: LEVOTHYROXINE
     Indication: HYPOTHYROIDISM
     Dosage: UNK
     Route: 065
  2. SIMVASTATIN. [Concomitant]
     Active Substance: SIMVASTATIN
  3. BIKTARVY [Suspect]
     Active Substance: BICTEGRAVIR SODIUM\EMTRICITABINE\TENOFOVIR ALAFENAMIDE FUMARATE
     Indication: HIV INFECTION
     Dosage: 1 DOSAGE FORM, UNK
     Route: 048
     Dates: start: 20200210

REACTIONS (2)
  - Retinal detachment [Unknown]
  - Retinal tear [Recovered/Resolved]

NARRATIVE: CASE EVENT DATE: 20201210
